FAERS Safety Report 21884127 (Version 1)
Quarter: 2023Q1

REPORT INFORMATION
  Report Type: Spontaneous
  Country: US (occurrence: None)
  Receive Date: 20230118
  Receipt Date: 20230118
  Transmission Date: 20230418
  Serious: No
  Sender: FDA-Public Use
  Company Number: None

PATIENT
  Sex: 0

DRUGS (1)
  1. PAXLOVID [Suspect]
     Active Substance: NIRMATRELVIR\RITONAVIR
     Indication: COVID-19 treatment
     Dates: start: 20230108, end: 20230113

REACTIONS (4)
  - COVID-19 [None]
  - SARS-CoV-2 test negative [None]
  - SARS-CoV-2 test positive [None]
  - Rebound effect [None]

NARRATIVE: CASE EVENT DATE: 20230117
